FAERS Safety Report 22266516 (Version 1)
Quarter: 2023Q2

REPORT INFORMATION
  Report Type: Spontaneous
  Country: US (occurrence: None)
  Receive Date: 20230427
  Receipt Date: 20230427
  Transmission Date: 20230721
  Serious: Yes (Hospitalization)
  Sender: FDA-Public Use
  Company Number: None

PATIENT
  Age: 80 Year
  Sex: Male
  Weight: 98.02 kg

DRUGS (23)
  1. ABIRATERONE [Suspect]
     Active Substance: ABIRATERONE
     Indication: Prostate cancer
     Dosage: FREQUENCY : DAILY;?
     Route: 048
     Dates: start: 202301
  2. AMARYL [Concomitant]
     Active Substance: GLIMEPIRIDE
  3. AMLODIPINE BESY-BENAZEPRIL [Concomitant]
  4. ASPIRIN [Concomitant]
     Active Substance: ASPIRIN
  5. ATORVASTATIN [Concomitant]
  6. BASAGLAR KWIKPEN [Concomitant]
     Active Substance: INSULIN GLARGINE
  7. BICALUTAMIDE [Concomitant]
     Active Substance: BICALUTAMIDE
  8. CEFDINER [Concomitant]
  9. CLOPIDOGREL [Concomitant]
     Active Substance: CLOPIDOGREL BISULFATE
  10. COSOPT [Concomitant]
     Active Substance: DORZOLAMIDE HYDROCHLORIDE\TIMOLOL MALEATE
  11. DOXYCYCLINE [Concomitant]
  12. FLOMAX [Concomitant]
     Active Substance: TAMSULOSIN HYDROCHLORIDE
  13. GUAIFENESIN [Concomitant]
     Active Substance: GUAIFENESIN
  14. HYDRALAZINE [Concomitant]
  15. LATANOPROST [Concomitant]
     Active Substance: LATANOPROST
  16. OSELTAMIVIR [Concomitant]
     Active Substance: OSELTAMIVIR
  17. PANTOPRAZOLE [Concomitant]
     Active Substance: PANTOPRAZOLE
  18. PENTOXIFYLLINE [Concomitant]
     Active Substance: PENTOXIFYLLINE
  19. PILOCARPINE HCL [Concomitant]
  20. PROCARDIA [Concomitant]
     Active Substance: NIFEDIPINE
  21. TRELSTAR [Concomitant]
     Active Substance: TRIPTORELIN PAMOATE
  22. VITAMIN B12 [Concomitant]
     Active Substance: CYANOCOBALAMIN
  23. VITAMIN D3 [Concomitant]
     Active Substance: CHOLECALCIFEROL

REACTIONS (1)
  - Hospitalisation [None]
